FAERS Safety Report 21377241 (Version 2)
Quarter: 2022Q3

REPORT INFORMATION
  Report Type: Spontaneous
  Country: US (occurrence: US)
  Receive Date: 20220926
  Receipt Date: 20220930
  Transmission Date: 20221027
  Serious: Yes (Hospitalization, Other)
  Sender: FDA-Public Use
  Company Number: US-PFIZER INC-202201182467

PATIENT
  Age: 64 Year
  Sex: Female

DRUGS (1)
  1. ZOSYN [Suspect]
     Active Substance: PIPERACILLIN SODIUM\TAZOBACTAM SODIUM
     Indication: Bacterial infection
     Dosage: UNK (DRIP THAT TOOK 24 HOURS)
     Route: 041

REACTIONS (10)
  - Renal impairment [Unknown]
  - Hepatic function abnormal [Unknown]
  - Oxygen saturation decreased [Unknown]
  - Near death experience [Unknown]
  - Lung disorder [Unknown]
  - Body temperature decreased [Unknown]
  - Blood pressure decreased [Unknown]
  - Diarrhoea [Unknown]
  - Nausea [Unknown]
  - Asthenia [Unknown]
